FAERS Safety Report 4352551-6 (Version None)
Quarter: 2004Q2

REPORT INFORMATION
  Report Type: 
  Country: None (occurrence: None)
  Receive Date: 20040428
  Receipt Date: 20040415
  Transmission Date: 20050107
  Serious: Yes (Hospitalization)
  Sender: FDA-Public Use
  Company Number: PERI00204001147

PATIENT
  Age: 71 Year
  Sex: Female

DRUGS (9)
  1. COVERSYL (PERINDOPRIL) [Suspect]
     Dosage: 4 MG QD PO
     Route: 048
  2. MEFENAMIC ACID [Suspect]
     Indication: ILL-DEFINED DISORDER
     Dosage: 500 MG TID
  3. HALOPERIDOL [Concomitant]
  4. PROCYCLIDINE HYDROCHLORIDE 2MG TAB [Concomitant]
  5. DOTHIEPIN (DOTHIEPIN) [Concomitant]
  6. SIMVASTATIN [Concomitant]
  7. DILTIAZEM [Concomitant]
  8. ASPIRIN [Concomitant]
  9. CLOPIDOGREL (CLOPIDOGREL) [Concomitant]

REACTIONS (2)
  - ASTHMA [None]
  - COUGH [None]
